FAERS Safety Report 13320975 (Version 1)
Quarter: 2017Q1

REPORT INFORMATION
  Report Type: Spontaneous
  Country: BR (occurrence: BR)
  Receive Date: 20170309
  Receipt Date: 20170309
  Transmission Date: 20170428
  Serious: Yes (Other)
  Sender: FDA-Public Use
  Company Number: BR-ROCHE-1850792

PATIENT
  Age: 82 Year
  Sex: Female
  Weight: 65 kg

DRUGS (9)
  1. GAZYVA [Suspect]
     Active Substance: OBINUTUZUMAB
     Dosage: CYCLE 2 DAY 1
     Route: 042
     Dates: start: 20161019
  2. LEVOID [Concomitant]
     Active Substance: LEVOTHYROXINE
  3. TAMARINE (BRAZIL) [Concomitant]
  4. GABAPENTIN. [Concomitant]
     Active Substance: GABAPENTIN
  5. GAZYVA [Suspect]
     Active Substance: OBINUTUZUMAB
     Indication: CHRONIC LYMPHOCYTIC LEUKAEMIA
     Dosage: CYCLE 1 DAY 1 (C1D1)
     Route: 042
     Dates: start: 20161018
  6. ACETYLSALICYLIC ACID [Concomitant]
     Active Substance: ASPIRIN
  7. LEXAPRO [Concomitant]
     Active Substance: ESCITALOPRAM OXALATE
  8. LOSARTAN. [Concomitant]
     Active Substance: LOSARTAN
  9. ALDAZIDE [Concomitant]
     Active Substance: BUTHIAZIDE\SPIRONOLACTONE

REACTIONS (5)
  - Pyrexia [Recovered/Resolved]
  - Dizziness [Recovered/Resolved]
  - Hypotension [Recovered/Resolved]
  - Tremor [Recovered/Resolved]
  - Sensation of foreign body [Recovered/Resolved]

NARRATIVE: CASE EVENT DATE: 20161018
